FAERS Safety Report 20619427 (Version 1)
Quarter: 2022Q1

REPORT INFORMATION
  Report Type: Spontaneous
  Country: FR (occurrence: FR)
  Receive Date: 20220322
  Receipt Date: 20220322
  Transmission Date: 20220423
  Serious: Yes (Hospitalization)
  Sender: FDA-Public Use
  Company Number: None

PATIENT
  Age: 57 Year
  Sex: Male
  Weight: 70 kg

DRUGS (4)
  1. BUSULFAN [Suspect]
     Active Substance: BUSULFAN
     Indication: Bone marrow conditioning regimen
     Dosage: 1,60 MG/KG PAR JOUR SOIT 112 MG PAR JOUR
     Route: 042
     Dates: start: 20220205, end: 20220205
  2. BUSULFAN [Suspect]
     Active Substance: BUSULFAN
     Indication: Bone marrow conditioning regimen
     Dosage: 3,20 MG/KG PAR JOUR SOIT 224 MG PAR JOUR
     Route: 042
     Dates: start: 20220203, end: 20220204
  3. PIPERACILLIN SODIUM\TAZOBACTAM SODIUM [Suspect]
     Active Substance: PIPERACILLIN SODIUM\TAZOBACTAM SODIUM
     Indication: Febrile bone marrow aplasia
     Dosage: 1 INJECTION TOUTES LES 6 HEURES
     Route: 042
     Dates: start: 20220208, end: 20220211
  4. TEPADINA [Suspect]
     Active Substance: THIOTEPA
     Indication: Bone marrow conditioning regimen
     Dosage: 250 MG/M2 PAR JOUR SOIT 460 MG PAR JOUR
     Route: 042
     Dates: start: 20220131, end: 20220202

REACTIONS (3)
  - Rash maculo-papular [Recovering/Resolving]
  - Hepatic cytolysis [Recovering/Resolving]
  - Gamma-glutamyltransferase increased [Recovering/Resolving]

NARRATIVE: CASE EVENT DATE: 20220208
